FAERS Safety Report 8341455-X (Version None)
Quarter: 2012Q2

REPORT INFORMATION
  Report Type: 
  Country: None (occurrence: None)
  Receive Date: 20120507
  Receipt Date: 20120503
  Transmission Date: 20120825
  Serious: Yes (Other)
  Sender: FDA-Public Use
  Company Number: IT-MERCK-1202ITA00060

PATIENT
  Age: 46 Year
  Sex: Male

DRUGS (3)
  1. GLICLAZIDE [Concomitant]
     Route: 048
     Dates: start: 20110207, end: 20120130
  2. JANUMET [Suspect]
     Indication: TYPE 2 DIABETES MELLITUS
     Route: 048
     Dates: start: 20090430, end: 20120130
  3. METFORMIN [Concomitant]
     Indication: TYPE 2 DIABETES MELLITUS
     Route: 048
     Dates: start: 20070118, end: 20120130

REACTIONS (1)
  - PANCREATIC CARCINOMA [None]
